FAERS Safety Report 18984822 (Version 4)
Quarter: 2021Q4

REPORT INFORMATION
  Report Type: Report from Study
  Country: US (occurrence: US)
  Receive Date: 20210309
  Receipt Date: 20211220
  Transmission Date: 20220303
  Serious: No
  Sender: FDA-Public Use
  Company Number: NVSC2021US047593

PATIENT
  Age: 73 Year
  Sex: Male

DRUGS (1)
  1. ENTRESTO [Suspect]
     Active Substance: SACUBITRIL\VALSARTAN
     Indication: Cardiac failure
     Dosage: 24.26 MG, BID
     Route: 048
     Dates: start: 20190204

REACTIONS (5)
  - Peroneal nerve palsy [Unknown]
  - Back disorder [Unknown]
  - Joint injury [Unknown]
  - Osteoporosis [Unknown]
  - Fatigue [Unknown]

NARRATIVE: CASE EVENT DATE: 20210201
